FAERS Safety Report 7359824-3 (Version None)
Quarter: 2011Q1

REPORT INFORMATION
  Report Type: 
  Country: None (occurrence: None)
  Receive Date: 20110317
  Receipt Date: 20110218
  Transmission Date: 20110831
  Serious: No
  Sender: FDA-Public Use
  Company Number: US-B.I. PHARMACEUTICALS,INC./RIDGEFIELD-2011-BP-06300BP

PATIENT
  Age: 78 Year
  Sex: Female

DRUGS (4)
  1. ANTIHYPERTENSIVE [Concomitant]
     Indication: HYPERTENSION
  2. ADVAIR DISKUS 100/50 [Concomitant]
  3. VYTORIN [Concomitant]
  4. PRADAXA [Suspect]

REACTIONS (3)
  - TREMOR [None]
  - PALPITATIONS [None]
  - FEELING ABNORMAL [None]
